FAERS Safety Report 6555082-8 (Version None)
Quarter: 2010Q1

REPORT INFORMATION
  Report Type: 
  Country: None (occurrence: None)
  Receive Date: 20100126
  Receipt Date: 20100126
  Transmission Date: 20100710
  Serious: Yes (Life-Threatening)
  Sender: FDA-Public Use
  Company Number: None

PATIENT
  Age: 65 Year
  Sex: Male
  Weight: 134.26 kg

DRUGS (1)
  1. DOCETAXEL [Suspect]
     Indication: LUNG NEOPLASM MALIGNANT
     Dosage: 155 MG ONCE IV
     Route: 042
     Dates: start: 20100121, end: 20100121

REACTIONS (4)
  - ANAPHYLACTIC REACTION [None]
  - HOT FLUSH [None]
  - PARAESTHESIA [None]
  - PULSE ABSENT [None]
